FAERS Safety Report 11595785 (Version 1)
Quarter: 2015Q4

REPORT INFORMATION
  Report Type: Report from Study
  Country: US (occurrence: US)
  Receive Date: 20151006
  Receipt Date: 20151006
  Transmission Date: 20160304
  Serious: Yes (Other)
  Sender: FDA-Public Use
  Company Number: PHEH2015US019208

PATIENT
  Age: 41 Year
  Sex: Female

DRUGS (1)
  1. GILENYA [Suspect]
     Active Substance: FINGOLIMOD HYDROCHLORIDE
     Indication: PRODUCT USED FOR UNKNOWN INDICATION
     Dosage: UNK
     Route: 065
     Dates: start: 20150909

REACTIONS (7)
  - Visual impairment [Recovering/Resolving]
  - Maternal exposure during pregnancy [Unknown]
  - Thrombosis [Recovering/Resolving]
  - Clumsiness [Recovering/Resolving]
  - Vaginal haemorrhage [Recovering/Resolving]
  - Dry eye [Recovering/Resolving]
  - Abortion spontaneous [Recovering/Resolving]

NARRATIVE: CASE EVENT DATE: 20150912
